FAERS Safety Report 4843900-0 (Version None)
Quarter: 2005Q4

REPORT INFORMATION
  Report Type: 
  Country: None (occurrence: None)
  Receive Date: 20051202
  Receipt Date: 20031016
  Transmission Date: 20060501
  Serious: Yes (Hospitalization, Disabling, Other)
  Sender: FDA-Public Use
  Company Number: US-MERCK-0310USA01956

PATIENT
  Age: 48 Year
  Sex: Male
  Weight: 66 kg

DRUGS (17)
  1. VIOXX [Suspect]
     Indication: OSTEOARTHRITIS
     Route: 048
     Dates: start: 19990501, end: 20000101
  2. VIOXX [Suspect]
     Route: 048
     Dates: start: 20010101, end: 20020101
  3. VIOXX [Suspect]
     Route: 048
     Dates: start: 20000101, end: 20001205
  4. VIOXX [Suspect]
     Indication: RADICULITIS LUMBOSACRAL
     Route: 048
     Dates: start: 19990501, end: 20000101
  5. VIOXX [Suspect]
     Route: 048
     Dates: start: 20010101, end: 20020101
  6. VIOXX [Suspect]
     Route: 048
     Dates: start: 20000101, end: 20001205
  7. CELEBREX [Concomitant]
     Route: 065
     Dates: start: 19991210, end: 20001205
  8. LORTAB [Concomitant]
     Route: 065
  9. NEURONTIN [Concomitant]
     Route: 065
     Dates: start: 19990716
  10. ROBAXIN [Concomitant]
     Route: 065
     Dates: start: 19991210, end: 20020723
  11. AMITRIPTYLINE HYDROCHLORIDE [Concomitant]
     Route: 065
     Dates: start: 19990514, end: 20011003
  12. HYDROCODONE BITARTRATE [Concomitant]
     Route: 065
     Dates: start: 19990502
  13. LORAZEPAM [Concomitant]
     Route: 065
     Dates: start: 19990514, end: 19990515
  14. TRAZODONE HYDROCHLORIDE [Concomitant]
     Route: 065
     Dates: start: 19990521, end: 20030306
  15. IBUPROFEN [Concomitant]
     Route: 065
  16. ACETAMINOPHEN AND HYDROCODONE BITARTRATE [Concomitant]
     Route: 065
  17. CIPRO [Concomitant]
     Route: 065

REACTIONS (68)
  - ABDOMINAL BRUIT [None]
  - ABDOMINAL DISCOMFORT [None]
  - ACCIDENT AT WORK [None]
  - ACUTE MYOCARDIAL INFARCTION [None]
  - ADHESION [None]
  - ALCOHOL WITHDRAWAL SYNDROME [None]
  - ALCOHOLISM [None]
  - ANAEMIA [None]
  - ANXIETY [None]
  - ARTERIOSCLEROSIS [None]
  - ARTHRALGIA [None]
  - ARTHROPATHY [None]
  - BACK DISORDER [None]
  - BACK PAIN [None]
  - BRONCHITIS [None]
  - CARDIAC DISORDER [None]
  - CARDIAC FAILURE CONGESTIVE [None]
  - CEREBROVASCULAR ACCIDENT [None]
  - CHEST PAIN [None]
  - CONVULSION [None]
  - CORONARY ARTERY DISEASE [None]
  - DEPRESSION [None]
  - DRUG DEPENDENCE [None]
  - DRUG INEFFECTIVE [None]
  - DYSURIA [None]
  - EMOTIONAL DISTRESS [None]
  - FACET JOINT SYNDROME [None]
  - FATIGUE [None]
  - GALLBLADDER POLYP [None]
  - HEADACHE [None]
  - HEPATITIS C [None]
  - HYPERLIPIDAEMIA [None]
  - HYPERTENSION [None]
  - INSOMNIA [None]
  - INTERVERTEBRAL DISC PROTRUSION [None]
  - LEFT VENTRICULAR FAILURE [None]
  - LOBAR PNEUMONIA [None]
  - LOSS OF CONSCIOUSNESS [None]
  - LUMBAR SPINAL STENOSIS [None]
  - MICTURITION URGENCY [None]
  - MITRAL VALVE INCOMPETENCE [None]
  - MOUTH ULCERATION [None]
  - MUSCLE SPASMS [None]
  - MYOCARDIAL INFARCTION [None]
  - MYOCARDIAL ISCHAEMIA [None]
  - MYOFASCIAL PAIN SYNDROME [None]
  - NECK PAIN [None]
  - NEURITIS [None]
  - NEUROPATHY PERIPHERAL [None]
  - OCCULT BLOOD POSITIVE [None]
  - OSTEOARTHRITIS [None]
  - PAIN [None]
  - PANIC ATTACK [None]
  - PERIPHERAL VASCULAR DISORDER [None]
  - PNEUMONIA [None]
  - POLLAKIURIA [None]
  - POST PROCEDURAL COMPLICATION [None]
  - PROSTATITIS [None]
  - PYREXIA [None]
  - RADICULITIS LUMBOSACRAL [None]
  - RASH ERYTHEMATOUS [None]
  - RASH PRURITIC [None]
  - SCIATICA [None]
  - SPINAL OSTEOARTHRITIS [None]
  - STRESS [None]
  - SYNCOPE [None]
  - URINARY TRACT INFECTION [None]
  - VISION BLURRED [None]
